FAERS Safety Report 15403556 (Version 3)
Quarter: 2020Q3

REPORT INFORMATION
  Report Type: Report from Study
  Country: US (occurrence: US)
  Receive Date: 20180919
  Receipt Date: 20190201
  Transmission Date: 20201104
  Serious: Yes (Life-Threatening, Hospitalization)
  Sender: FDA-Public Use
  Company Number: US-JNJFOC-20180915718

PATIENT
  Age: 73 Year
  Sex: Male
  Weight: 110 kg

DRUGS (10)
  1. DARATUMUMAB [Suspect]
     Active Substance: DARATUMUMAB
     Indication: PLASMA CELL MYELOMA
     Dosage: DAYS 1, 8, AND 15
     Route: 058
     Dates: start: 20180730, end: 20180910
  2. BORTEZOMIB. [Suspect]
     Active Substance: BORTEZOMIB
     Indication: PLASMA CELL MYELOMA
     Dosage: DAYS 1, 4, 8, AND 11
     Route: 058
     Dates: start: 20180730
  3. BORTEZOMIB. [Suspect]
     Active Substance: BORTEZOMIB
     Indication: PLASMA CELL MYELOMA
     Dosage: DAYS 1, 4, 8, AND 11
     Route: 058
     Dates: start: 20180910, end: 20180910
  4. DEXAMETHASONE. [Concomitant]
     Active Substance: DEXAMETHASONE
     Indication: PLASMA CELL MYELOMA
     Dosage: DAYS 1, 2, 8, 9, 15, AND 16
     Route: 048
     Dates: start: 20180730
  5. DARATUMUMAB [Suspect]
     Active Substance: DARATUMUMAB
     Indication: PLASMA CELL MYELOMA
     Dosage: DAY 1, 8, 15
     Route: 058
     Dates: start: 20180924, end: 20180924
  6. XARELTO [Concomitant]
     Active Substance: RIVAROXABAN
     Indication: DEEP VEIN THROMBOSIS
  7. LENALIDOMIDE [Suspect]
     Active Substance: LENALIDOMIDE
     Indication: PLASMA CELL MYELOMA
     Dosage: DAYS 1?14
     Dates: start: 20180910, end: 20180910
  8. DEXAMETHASONE. [Concomitant]
     Active Substance: DEXAMETHASONE
     Indication: PLASMA CELL MYELOMA
     Dosage: DAYS 1, 2, 8, 9, 15, AND 16
     Route: 048
     Dates: start: 20180924, end: 20180924
  9. LENALIDOMIDE [Suspect]
     Active Substance: LENALIDOMIDE
     Indication: PLASMA CELL MYELOMA
     Dosage: DAYS 1?14
     Dates: start: 20180730
  10. DEXAMETHASONE. [Concomitant]
     Active Substance: DEXAMETHASONE
     Indication: PLASMA CELL MYELOMA
     Dosage: DAYS 1, 2, 8, 9, 15, AND 16
     Route: 048
     Dates: start: 20180910, end: 20180910

REACTIONS (4)
  - Thalamic infarction [Recovering/Resolving]
  - Urinary tract infection [Recovered/Resolved]
  - Urosepsis [Recovered/Resolved]
  - Fatigue [Recovered/Resolved]

NARRATIVE: CASE EVENT DATE: 20180912
